FAERS Safety Report 18058052 (Version 1)
Quarter: 2020Q3

REPORT INFORMATION
  Report Type: Spontaneous
  Country: JP (occurrence: JP)
  Receive Date: 20200723
  Receipt Date: 20200723
  Transmission Date: 20201103
  Serious: Yes (Death, Other)
  Sender: FDA-Public Use
  Company Number: JP-SUN PHARMACEUTICAL INDUSTRIES LTD-2020RR-253620

PATIENT
  Age: 67 Year
  Sex: Female
  Weight: 38.4 kg

DRUGS (15)
  1. DEXAMETHASONE. [Suspect]
     Active Substance: DEXAMETHASONE
     Dosage: GCD?R THERAPY, 2 COURSES
     Route: 065
  2. RITUXIMAB. [Suspect]
     Active Substance: RITUXIMAB
     Dosage: R?IVAB TREATMENT, 2 COURSES
     Route: 065
  3. BENDAMUSTINE [Suspect]
     Active Substance: BENDAMUSTINE
     Indication: NODAL MARGINAL ZONE B-CELL LYMPHOMA
     Dosage: R?B THERAPY, ONE COURSE
     Route: 065
  4. IFOSFAMIDE. [Suspect]
     Active Substance: IFOSFAMIDE
     Indication: NODAL MARGINAL ZONE B-CELL LYMPHOMA
     Dosage: R?IVAB TREATMENT, 2 COURSES
     Route: 065
  5. GEMCITABINE. [Suspect]
     Active Substance: GEMCITABINE
     Indication: NODAL MARGINAL ZONE B-CELL LYMPHOMA
     Dosage: GCD?R THERAPY, 2 COURSES
     Route: 065
  6. CARBOPLATIN. [Suspect]
     Active Substance: CARBOPLATIN
     Indication: NODAL MARGINAL ZONE B-CELL LYMPHOMA
     Dosage: GCD?R THERAPY, 2 COURSES
     Route: 065
  7. ETOPOSIDE. [Suspect]
     Active Substance: ETOPOSIDE
     Indication: NODAL MARGINAL ZONE B-CELL LYMPHOMA
     Dosage: R?IVAB TREATMENT, 2 COURSES
     Route: 065
  8. CYTARABINE. [Suspect]
     Active Substance: CYTARABINE
     Indication: NODAL MARGINAL ZONE B-CELL LYMPHOMA
     Dosage: R?IVAB TREATMENT, 2 COURSES
     Route: 065
  9. VINCRISTINE [Suspect]
     Active Substance: VINCRISTINE
     Indication: NODAL MARGINAL ZONE B-CELL LYMPHOMA
     Dosage: R?CVP THERAPY, 2 COURSES
     Route: 065
  10. RITUXIMAB. [Suspect]
     Active Substance: RITUXIMAB
     Indication: NODAL MARGINAL ZONE B-CELL LYMPHOMA
     Dosage: R?CVP THERAPY, 2 COURSES
     Route: 065
  11. PREDNISOLONE. [Suspect]
     Active Substance: PREDNISOLONE
     Indication: NODAL MARGINAL ZONE B-CELL LYMPHOMA
     Dosage: R?CVP THERAPY, 2 COURSES
     Route: 065
  12. RITUXIMAB. [Suspect]
     Active Substance: RITUXIMAB
     Dosage: GCD?R THERAPY, 2 COURSES
     Route: 065
  13. CYCLOPHOSPHAMIDE. [Suspect]
     Active Substance: CYCLOPHOSPHAMIDE
     Indication: NODAL MARGINAL ZONE B-CELL LYMPHOMA
     Dosage: R?CVP THERAPY, 2 COURSES
     Route: 065
  14. RITUXIMAB. [Suspect]
     Active Substance: RITUXIMAB
     Dosage: R?B THERAPY, ONE COURSE
     Route: 065
  15. DEXAMETHASONE. [Suspect]
     Active Substance: DEXAMETHASONE
     Indication: NODAL MARGINAL ZONE B-CELL LYMPHOMA
     Dosage: R?IVAB TREATMENT, 2 COURSES
     Route: 065

REACTIONS (7)
  - Drug ineffective [Unknown]
  - Disease progression [Fatal]
  - Therapeutic product effect incomplete [Unknown]
  - Headache [Unknown]
  - Drug resistance [Unknown]
  - Altered state of consciousness [Unknown]
  - Meningitis cryptococcal [Unknown]
